FAERS Safety Report 24599074 (Version 2)
Quarter: 2024Q4

REPORT INFORMATION
  Report Type: Spontaneous
  Country: JP (occurrence: JP)
  Receive Date: 20241110
  Receipt Date: 20241213
  Transmission Date: 20250114
  Serious: Yes (Other)
  Sender: ALEXION PHARMACEUTICALS
  Company Number: JP-ASTRAZENECA-240118080_012620_P_1

PATIENT

DRUGS (8)
  1. TRUQAP [Suspect]
     Active Substance: CAPIVASERTIB
     Indication: Breast cancer recurrent
     Dosage: FOUR CONSECUTIVE DAYS ON TREATMENT FOLLOWED BY THREE DAYS OFF TREATMENT
  2. TRUQAP [Suspect]
     Active Substance: CAPIVASERTIB
     Dosage: FOUR CONSECUTIVE DAYS ON TREATMENT FOLLOWED BY THREE DAYS OFF TREATMENT
     Route: 048
  3. TRUQAP [Suspect]
     Active Substance: CAPIVASERTIB
     Dosage: FOUR CONSECUTIVE DAYS ON TREATMENT FOLLOWED BY THREE DAYS OFF TREATMENT
  4. TRUQAP [Suspect]
     Active Substance: CAPIVASERTIB
     Dosage: FOUR CONSECUTIVE DAYS ON TREATMENT FOLLOWED BY THREE DAYS OFF TREATMENT
     Route: 048
  5. FULVESTRANT [Suspect]
     Active Substance: FULVESTRANT
     Indication: Breast cancer recurrent
     Dosage: DOSE UNKNOWN
  6. FULVESTRANT [Suspect]
     Active Substance: FULVESTRANT
     Dosage: DOSE UNKNOWN
     Route: 030
  7. FULVESTRANT [Suspect]
     Active Substance: FULVESTRANT
     Dosage: DOSE UNKNOWN
  8. FULVESTRANT [Suspect]
     Active Substance: FULVESTRANT
     Dosage: DOSE UNKNOWN
     Route: 030

REACTIONS (3)
  - Rash [Recovering/Resolving]
  - Face oedema [Recovering/Resolving]
  - Oral mucosal eruption [Recovering/Resolving]
